FAERS Safety Report 24545410 (Version 29)
Quarter: 2025Q4

REPORT INFORMATION
  Report Type: Report from Study
  Country: CN (occurrence: CN)
  Receive Date: 20241024
  Receipt Date: 20251211
  Transmission Date: 20260117
  Serious: Yes (Hospitalization, Other)
  Sender: ROCHE
  Company Number: CN-ROCHE-10000113437

PATIENT
  Age: 7 Year
  Sex: Male

DRUGS (7)
  1. HEMLIBRA [Suspect]
     Active Substance: EMICIZUMAB-KXWH
     Indication: Factor VIII deficiency
     Dosage: 400U/TIME/D.
  2. HEMLIBRA [Suspect]
     Active Substance: EMICIZUMAB-KXWH
     Dosage: 400U
     Dates: start: 201805
  3. MABTHERA [Suspect]
     Active Substance: RITUXIMAB
     Indication: Factor VIII deficiency
  4. MABTHERA [Suspect]
     Active Substance: RITUXIMAB
  5. Hemoraas [Concomitant]
     Indication: Factor VIII deficiency
  6. BaiYinZhi [Concomitant]
     Indication: Factor VIII deficiency
  7. Coagulation VIII [Concomitant]
     Indication: Factor VIII deficiency

REACTIONS (26)
  - Cerebral haemorrhage [Unknown]
  - Anti factor VIII antibody increased [Unknown]
  - Sinus arrhythmia [Unknown]
  - Neutrophil percentage decreased [Recovered/Resolved]
  - Blood creatinine decreased [Not Recovered/Not Resolved]
  - White blood cell count increased [Recovered/Resolved]
  - Bile acids increased [Unknown]
  - Glycocholic acid increased [Unknown]
  - Blood lactate dehydrogenase increased [Unknown]
  - Activated partial thromboplastin time shortened [Unknown]
  - Blood fibrinogen decreased [Unknown]
  - Monocyte percentage increased [Unknown]
  - Haemoglobin decreased [Unknown]
  - Haematocrit decreased [Unknown]
  - Mean cell haemoglobin decreased [Unknown]
  - Monocyte count increased [Unknown]
  - Red cell distribution width decreased [Unknown]
  - Plateletcrit increased [Unknown]
  - Thrombin time prolonged [Unknown]
  - Bradyarrhythmia [Unknown]
  - Supraventricular extrasystoles [Unknown]
  - Sinus rhythm [Unknown]
  - Off label use [Unknown]
  - Treatment failure [Unknown]
  - Arrhythmia [Unknown]
  - Electrocardiogram T wave abnormal [Unknown]

NARRATIVE: CASE EVENT DATE: 20180501
